FAERS Safety Report 8883533 (Version 1)
Quarter: 2012Q4

REPORT INFORMATION
  Report Type: 
  Country: US (occurrence: US)
  Receive Date: 20121102
  Receipt Date: 20121102
  Transmission Date: 20130627
  Serious: No
  Sender: FDA-Public Use
  Company Number: US-ASTRAZENECA-2012SE03416

PATIENT
  Age: 75 Year
  Sex: Female
  Weight: 54.4 kg

DRUGS (3)
  1. CRESTOR [Suspect]
     Indication: BLOOD CHOLESTEROL
     Route: 048
     Dates: start: 201110
  2. LEVOTHYROXINE [Concomitant]
  3. HERBS [Concomitant]

REACTIONS (6)
  - Burning sensation [Unknown]
  - Acne [Unknown]
  - Headache [Unknown]
  - Pruritus [Unknown]
  - Insomnia [Unknown]
  - Hypersensitivity [Unknown]
